FAERS Safety Report 13151005 (Version 1)
Quarter: 2017Q1

REPORT INFORMATION
  Report Type: Spontaneous
  Country: US (occurrence: US)
  Receive Date: 20170125
  Receipt Date: 20170125
  Transmission Date: 20170428
  Serious: No
  Sender: FDA-Public Use
  Company Number: US-GLAXOSMITHKLINE-US2017010431

PATIENT
  Age: 75 Year
  Sex: Female

DRUGS (1)
  1. VENTOLIN HFA [Suspect]
     Active Substance: ALBUTEROL SULFATE
     Indication: BRONCHIECTASIS
     Dosage: 2 PUFF(S), PRN
     Route: 055
     Dates: start: 201611

REACTIONS (3)
  - Drug ineffective [Recovered/Resolved]
  - Device use error [Recovered/Resolved]
  - Product cleaning inadequate [Recovered/Resolved]

NARRATIVE: CASE EVENT DATE: 201611
